FAERS Safety Report 25796534 (Version 2)
Quarter: 2025Q4

REPORT INFORMATION
  Report Type: Spontaneous
  Country: EU (occurrence: EU)
  Receive Date: 20250912
  Receipt Date: 20251002
  Transmission Date: 20260118
  Serious: Yes (Hospitalization, Other)
  Sender: RANBAXY
  Company Number: EU-KENVUE-20250508243

PATIENT
  Age: 4 Year
  Sex: Female

DRUGS (1)
  1. ACETAMINOPHEN [Suspect]
     Active Substance: ACETAMINOPHEN
     Indication: Pyrexia
     Dosage: UNK
     Route: 065

REACTIONS (15)
  - Skin ulcer [Unknown]
  - Conjunctivitis [Unknown]
  - Lip dry [Unknown]
  - Nikolsky^s sign positive [Unknown]
  - Vulval disorder [Unknown]
  - Skin lesion [Unknown]
  - Erythema [Unknown]
  - Aphthous ulcer [Unknown]
  - Skin exfoliation [Unknown]
  - Leukocytosis [Unknown]
  - C-reactive protein increased [Unknown]
  - Mycoplasma test positive [Unknown]
  - Skin erosion [Unknown]
  - Rash [Unknown]
  - SJS-TEN overlap [Unknown]
